FAERS Safety Report 10013590 (Version 4)
Quarter: 2014Q3

REPORT INFORMATION
  Report Type: Report from Study
  Country: AR (occurrence: AR)
  Receive Date: 20140315
  Receipt Date: 20140909
  Transmission Date: 20150326
  Serious: Yes (Other)
  Sender: FDA-Public Use
  Company Number: AR-ROCHE-1365041

PATIENT
  Age: 68 Year
  Sex: Female

DRUGS (1)
  1. XOLAIR [Suspect]
     Active Substance: OMALIZUMAB
     Indication: ASTHMA
     Route: 030
     Dates: start: 201211

REACTIONS (6)
  - Snoring [Recovering/Resolving]
  - Incorrect route of drug administration [Unknown]
  - Agitation [Not Recovered/Not Resolved]
  - Eosinophilia [Not Recovered/Not Resolved]
  - Asthma [Recovering/Resolving]
  - Discomfort [Recovering/Resolving]

NARRATIVE: CASE EVENT DATE: 201403
